FAERS Safety Report 7462384-X (Version None)
Quarter: 2011Q2

REPORT INFORMATION
  Report Type: 
  Country: None (occurrence: None)
  Receive Date: 20110506
  Receipt Date: 20110418
  Transmission Date: 20111010
  Serious: Yes (Hospitalization, Other)
  Sender: FDA-Public Use
  Company Number: US-BAYER-2010-003584

PATIENT
  Age: 18 Year
  Sex: Female
  Weight: 58.957 kg

DRUGS (10)
  1. YAZ [Suspect]
     Indication: CONTRACEPTION
     Dosage: UNK
     Dates: start: 20090209, end: 20091201
  2. YASMIN [Suspect]
     Indication: CONTRACEPTION
     Dosage: UNK
     Dates: start: 20090209, end: 20091201
  3. PERCOCET [Concomitant]
  4. RANITIDINE [Concomitant]
  5. PROCHLORPERAZ [Concomitant]
     Dosage: UNK
     Dates: start: 20091118
  6. YAZ [Suspect]
     Indication: ACNE
  7. YASMIN [Suspect]
     Indication: ACNE
  8. YAZ [Suspect]
     Indication: PREMENSTRUAL SYNDROME
  9. YASMIN [Suspect]
     Indication: PREMENSTRUAL SYNDROME
  10. GOLYTELY [Concomitant]
     Dosage: UNK
     Dates: start: 20091113

REACTIONS (4)
  - CHOLECYSTITIS CHRONIC [None]
  - DEFORMITY [None]
  - GALLBLADDER DISORDER [None]
  - PAIN [None]
